FAERS Safety Report 4390259-1 (Version None)
Quarter: 2004Q2

REPORT INFORMATION
  Report Type: 
  Country: None (occurrence: None)
  Receive Date: 20040630
  Receipt Date: 20040607
  Transmission Date: 20050107
  Serious: No
  Sender: FDA-Public Use
  Company Number: 8154

PATIENT
  Age: 7 Year
  Sex: Female

DRUGS (12)
  1. METHOTREXATE [Suspect]
     Indication: LEUKAEMIA
     Dosage: 440 MG ONCE IV
     Route: 042
     Dates: start: 20040525, end: 20040526
  2. DEXAMETHASONE [Concomitant]
  3. CIPROFLOXACIN [Concomitant]
  4. ONDANSETRON [Concomitant]
  5. CO-TRIMOXAZOLE [Concomitant]
  6. CYTARABINE [Concomitant]
  7. PREDNISOLONE [Concomitant]
  8. IFOSFAMIDE [Concomitant]
  9. MESNA [Concomitant]
  10. DAUNORUBICIN HCL [Concomitant]
  11. VINDESINE [Concomitant]
  12. ASPARAGINASE [Concomitant]

REACTIONS (5)
  - ABDOMINAL PAIN [None]
  - ASPARTATE AMINOTRANSFERASE INCREASED [None]
  - DIARRHOEA [None]
  - INFUSION RELATED REACTION [None]
  - SYNCOPE VASOVAGAL [None]
